FAERS Safety Report 17264295 (Version 1)
Quarter: 2020Q1

REPORT INFORMATION
  Report Type: Spontaneous
  Country: US (occurrence: US)
  Receive Date: 20200113
  Receipt Date: 20200113
  Transmission Date: 20200409
  Serious: No
  Sender: FDA-Public Use
  Company Number: US-ACTELION-A-NJ2019-195647

PATIENT
  Age: 34 Year
  Sex: Female

DRUGS (4)
  1. VELETRI [Suspect]
     Active Substance: EPOPROSTENOL
     Dosage: 9.25 NG/KG, PER MIN
     Route: 042
     Dates: start: 20190921
  2. VELETRI [Suspect]
     Active Substance: EPOPROSTENOL
     Indication: PULMONARY ARTERIAL HYPERTENSION
     Dosage: 6.75 NG/KG, PER MIN
     Route: 042
     Dates: start: 20190904
  3. VELETRI [Suspect]
     Active Substance: EPOPROSTENOL
     Dosage: 16.75 NG/KG, PER MIN
     Route: 042
     Dates: start: 20191224
  4. VELETRI [Suspect]
     Active Substance: EPOPROSTENOL
     Dosage: 7.75 NG/KG, PER MIN
     Route: 042

REACTIONS (9)
  - Dyspnoea exertional [Unknown]
  - Hypotension [Unknown]
  - Heart rate increased [Unknown]
  - Oxygen saturation decreased [Unknown]
  - Chest discomfort [Recovered/Resolved]
  - Pain [Unknown]
  - Stress [Unknown]
  - Chest pain [Unknown]
  - Pain in jaw [Unknown]

NARRATIVE: CASE EVENT DATE: 201909
